FAERS Safety Report 17697235 (Version 1)
Quarter: 2020Q2

REPORT INFORMATION
  Report Type: Spontaneous
  Country: US (occurrence: US)
  Receive Date: 20200421
  Receipt Date: 20200421
  Transmission Date: 20200714
  Serious: No
  Sender: FDA-Public Use
  Company Number: None

PATIENT
  Age: 91 Year
  Sex: Female

DRUGS (1)
  1. REPATHA [Suspect]
     Active Substance: EVOLOCUMAB
     Dates: start: 202002

REACTIONS (5)
  - Pharyngeal disorder [None]
  - Dysphonia [None]
  - Nausea [None]
  - Discomfort [None]
  - Product quality issue [None]

NARRATIVE: CASE EVENT DATE: 20200421
